FAERS Safety Report 22075526 (Version 1)
Quarter: 2023Q1

REPORT INFORMATION
  Report Type: Spontaneous
  Country: CZ (occurrence: CZ)
  Receive Date: 20230308
  Receipt Date: 20230308
  Transmission Date: 20230418
  Serious: Yes (Other)
  Sender: FDA-Public Use
  Company Number: CZ-002147023-NVSC2023CZ031478

PATIENT

DRUGS (3)
  1. PROPAFENONE [Suspect]
     Active Substance: PROPAFENONE
     Indication: Cardiac disorder
     Dosage: 300 GRAM, QD (150 G, BID)
     Route: 048
     Dates: start: 202209
  2. FLUOROMETHOLONE [Suspect]
     Active Substance: FLUOROMETHOLONE
     Indication: Iridotomy
     Dosage: 4 GTT DROPS, QD
     Route: 065
     Dates: start: 20230131, end: 20230204
  3. FLUOROMETHOLONE [Suspect]
     Active Substance: FLUOROMETHOLONE
     Dosage: 1 GTT DROPS, QID
     Route: 065
     Dates: start: 20230131, end: 20230204

REACTIONS (4)
  - Extrasystoles [Recovered/Resolved]
  - Fatigue [Unknown]
  - Insomnia [Unknown]
  - Contraindicated product administered [Unknown]

NARRATIVE: CASE EVENT DATE: 20230201
